FAERS Safety Report 25154115 (Version 2)
Quarter: 2025Q3

REPORT INFORMATION
  Report Type: Spontaneous
  Country: US (occurrence: US)
  Receive Date: 20250403
  Receipt Date: 20250801
  Transmission Date: 20251021
  Serious: Yes (Other)
  Sender: SUNOVION
  Company Number: US-SMPA-2025SPA003507

PATIENT

DRUGS (19)
  1. ORGOVYX [Suspect]
     Active Substance: RELUGOLIX
     Indication: Prostate cancer
     Route: 048
  2. ALLOPURINOL [Concomitant]
     Active Substance: ALLOPURINOL
     Route: 065
  3. ASPIRIN [Concomitant]
     Active Substance: ASPIRIN
     Route: 065
  4. CLOPIDOGREL [Concomitant]
     Active Substance: CLOPIDOGREL BISULFATE
     Route: 065
  5. COENZYME Q10 [Concomitant]
     Active Substance: DIETARY SUPPLEMENT\UBIDECARENONE
     Route: 065
  6. MAGNESIUM [Concomitant]
     Active Substance: MAGNESIUM
     Route: 065
  7. VITAMIN B12 [Concomitant]
     Active Substance: CYANOCOBALAMIN
     Route: 065
  8. CYCLOBENZAPRINE [Concomitant]
     Active Substance: CYCLOBENZAPRINE
     Route: 065
  9. FERROUS SULFATE [Concomitant]
     Active Substance: FERROUS SULFATE
     Route: 065
  10. FOLIC ACID [Concomitant]
     Active Substance: FOLIC ACID
     Route: 065
  11. GABAPENTIN [Concomitant]
     Active Substance: GABAPENTIN
     Route: 065
  12. GLIPIZIDE [Concomitant]
     Active Substance: GLIPIZIDE
     Route: 065
  13. ISOSORBIDE MONONITRATE [Concomitant]
     Active Substance: ISOSORBIDE MONONITRATE
     Route: 065
  14. LANTUS [Concomitant]
     Active Substance: INSULIN GLARGINE
     Route: 065
  15. LOSARTAN [Concomitant]
     Active Substance: LOSARTAN
     Route: 065
  16. PANTOPRAZOLE [Concomitant]
     Active Substance: PANTOPRAZOLE
     Route: 065
  17. VITAMIN D3 [Concomitant]
     Active Substance: CHOLECALCIFEROL
     Route: 065
  18. ROPINIROLE [Concomitant]
     Active Substance: ROPINIROLE
     Route: 065
  19. ROSUVASTATIN [Concomitant]
     Active Substance: ROSUVASTATIN
     Route: 065

REACTIONS (3)
  - Prostate cancer recurrent [Unknown]
  - Cerebrovascular accident [Unknown]
  - Illness [Unknown]

NARRATIVE: CASE EVENT DATE: 20241101
